FAERS Safety Report 6126830-6 (Version None)
Quarter: 2009Q1

REPORT INFORMATION
  Report Type: 
  Country: None (occurrence: None)
  Receive Date: 20090320
  Receipt Date: 20080718
  Transmission Date: 20090719
  Serious: No
  Sender: FDA-Public Use
  Company Number: US-ABBOTT-08P-163-0464152-00

PATIENT
  Sex: Female
  Weight: 57.204 kg

DRUGS (5)
  1. ERYTHROMYCIN [Suspect]
     Indication: WOUND INFECTION
     Route: 048
     Dates: start: 19920101, end: 19920101
  2. CALCIUM [Concomitant]
     Indication: DRUG USE FOR UNKNOWN INDICATION
     Dosage: TAKES 2-3 PILL PRN
     Route: 048
  3. ONE-A-DAY VITAMIN [Concomitant]
     Indication: DRUG USE FOR UNKNOWN INDICATION
     Route: 048
  4. VITAMIN E [Concomitant]
     Indication: DRUG USE FOR UNKNOWN INDICATION
     Route: 048
  5. ASCORBIC ACID [Concomitant]
     Indication: DRUG USE FOR UNKNOWN INDICATION
     Route: 048

REACTIONS (3)
  - RASH [None]
  - SHOCK [None]
  - TREMOR [None]
